FAERS Safety Report 4859655-X (Version None)
Quarter: 2005Q4

REPORT INFORMATION
  Report Type: 
  Country: None (occurrence: None)
  Receive Date: 20051215
  Receipt Date: 20051201
  Transmission Date: 20060501
  Serious: Yes (Hospitalization)
  Sender: FDA-Public Use
  Company Number: 12994

PATIENT
  Age: 63 Year
  Sex: Male

DRUGS (13)
  1. CARBOPLATIN [Suspect]
     Indication: BRONCHIAL CARCINOMA
     Dates: start: 20050711, end: 20050811
  2. CARBOPLATIN [Suspect]
     Indication: LUNG NEOPLASM MALIGNANT
     Dates: start: 20050711, end: 20050811
  3. PACLITAXEL [Suspect]
     Indication: BRONCHIAL CARCINOMA
     Dates: start: 20050711, end: 20050811
  4. PACLITAXEL [Suspect]
     Indication: LUNG NEOPLASM MALIGNANT
     Dates: start: 20050711, end: 20050811
  5. IRESSA [Suspect]
     Indication: BRONCHIAL CARCINOMA
     Dosage: 250 MG DAILY PO
     Route: 048
     Dates: start: 20050711, end: 20050819
  6. IRESSA [Suspect]
     Indication: LUNG NEOPLASM MALIGNANT
     Dosage: 250 MG DAILY PO
     Route: 048
     Dates: start: 20050711, end: 20050819
  7. WARFARIN SODIUM [Concomitant]
  8. RANITIDINE [Concomitant]
  9. CLARITIN [Concomitant]
  10. ANZEMET [Concomitant]
  11. OMEPRAZOLE [Concomitant]
  12. MUCAINE /00115701/ [Concomitant]
  13. PANADOL /00020001/ [Concomitant]

REACTIONS (1)
  - LOWER RESPIRATORY TRACT INFECTION [None]
